FAERS Safety Report 5226300-3 (Version None)
Quarter: 2007Q1

REPORT INFORMATION
  Report Type: 
  Country: None (occurrence: None)
  Receive Date: 20070201
  Receipt Date: 20070123
  Transmission Date: 20070707
  Serious: Yes (Other)
  Sender: FDA-Public Use
  Company Number: JP-ROCHE-479633

PATIENT
  Age: 80 Year
  Sex: Male

DRUGS (5)
  1. PANALDINE [Suspect]
     Indication: CEREBRAL INFARCTION
     Route: 048
     Dates: start: 20050411, end: 20070110
  2. ASPIRIN [Concomitant]
     Dates: start: 20050411
  3. AMLODIPINE BESYLATE [Concomitant]
     Dates: start: 20060115
  4. MICARDIS [Concomitant]
     Dates: start: 20060215
  5. GASTER [Concomitant]
     Dates: start: 20050411

REACTIONS (3)
  - HEPATIC ENZYME INCREASED [None]
  - LABORATORY TEST ABNORMAL [None]
  - LIVER DISORDER [None]
